FAERS Safety Report 8622996-4 (Version None)
Quarter: 2012Q3

REPORT INFORMATION
  Report Type: 
  Country: None (occurrence: None)
  Receive Date: 20120827
  Receipt Date: 20120824
  Transmission Date: 20120928
  Serious: Yes (Disabling, Other)
  Sender: FDA-Public Use
  Company Number: PHHY2012AU010863

PATIENT
  Sex: Female

DRUGS (3)
  1. CLOZARIL [Suspect]
     Dosage: 75 MG, UNK
     Dates: start: 20110714, end: 20120814
  2. SEROQUEL [Concomitant]
     Indication: PSYCHOTIC DISORDER
     Dosage: 800 MG, DAILY
     Route: 048
     Dates: start: 20100101
  3. EFFEXOR XR [Concomitant]
     Indication: DEPRESSION
     Dosage: 300 MG, DAILY
     Route: 048
     Dates: start: 20100101

REACTIONS (3)
  - SALIVARY HYPERSECRETION [None]
  - ENURESIS [None]
  - DRUG INEFFECTIVE [None]
